FAERS Safety Report 12531351 (Version 6)
Quarter: 2016Q3

REPORT INFORMATION
  Report Type: Spontaneous
  Country: PT (occurrence: PT)
  Receive Date: 20160706
  Receipt Date: 20160726
  Transmission Date: 20161109
  Serious: Yes (Other)
  Sender: FDA-Public Use
  Company Number: PHHY2016PT091438

PATIENT
  Age: 88 Year
  Sex: Female

DRUGS (1)
  1. DICLOFENAC [Suspect]
     Active Substance: DICLOFENAC
     Indication: PYREXIA
     Dosage: 75 MG/3 ML IN HER RIGHT THIGH
     Route: 058

REACTIONS (3)
  - Injection site necrosis [Recovering/Resolving]
  - Injection site erythema [Unknown]
  - Product use issue [Unknown]
